FAERS Safety Report 6320730-4 (Version None)
Quarter: 2009Q3

REPORT INFORMATION
  Report Type: 
  Country: None (occurrence: None)
  Receive Date: 20090822
  Receipt Date: 20081201
  Transmission Date: 20100115
  Serious: No
  Sender: FDA-Public Use
  Company Number: US-ABBOTT-08P-163-0490627-00

PATIENT
  Age: 67 Year
  Sex: Male

DRUGS (2)
  1. NIASPAN [Suspect]
     Indication: HYPERCHOLESTEROLAEMIA
     Route: 048
     Dates: end: 20070101
  2. NIASPAN [Suspect]
     Route: 048
     Dates: start: 20080901

REACTIONS (4)
  - BLOOD URIC ACID INCREASED [None]
  - ERYTHEMA [None]
  - GOUT [None]
  - LOCAL SWELLING [None]
